FAERS Safety Report 6887058-5 (Version None)
Quarter: 2010Q3

REPORT INFORMATION
  Report Type: 
  Country: None (occurrence: None)
  Receive Date: 20100708
  Receipt Date: 20100322
  Transmission Date: 20110219
  Serious: Yes (Other)
  Sender: FDA-Public Use
  Company Number: 2010024395

PATIENT
  Sex: Female

DRUGS (1)
  1. CHANTIX [Suspect]

REACTIONS (7)
  - DEPRESSED MOOD [None]
  - FEELING ABNORMAL [None]
  - NASAL DISCOMFORT [None]
  - OEDEMA MOUTH [None]
  - STOMATITIS [None]
  - SWOLLEN TONGUE [None]
  - WEIGHT DECREASED [None]
